FAERS Safety Report 19486476 (Version 3)
Quarter: 2022Q1

REPORT INFORMATION
  Report Type: Spontaneous
  Country: DE (occurrence: DE)
  Receive Date: 20210702
  Receipt Date: 20220314
  Transmission Date: 20220423
  Serious: Yes (Congenital Anomaly)
  Sender: FDA-Public Use
  Company Number: DE-EMBRYOTOX-201908533-B

PATIENT
  Sex: Female

DRUGS (4)
  1. ESCITALOPRAM [Suspect]
     Active Substance: ESCITALOPRAM OXALATE
     Indication: Tension headache
     Dosage: 5 MILLIGRAM, QD (MATERNAL DOSE: 5 [MG/D])
     Route: 064
     Dates: start: 20190615, end: 20190716
  2. GABAPENTIN [Suspect]
     Active Substance: GABAPENTIN
     Indication: Tension headache
     Dosage: 900 MILLIGRAM, QD (MATERNAL DOSE: 900 [MG/D (300-0-600 MG)]
     Route: 064
     Dates: start: 20190615, end: 20190716
  3. EUTHYROX [Concomitant]
     Active Substance: LEVOTHYROXINE SODIUM
     Indication: Thyroid hormone replacement therapy
     Dosage: 150 MICROGRAM, QD (MATERNAL DOSE: 150 [?G/D (BIS 112 ?G/D))
     Route: 064
     Dates: start: 20190615, end: 20190910
  4. PROGESTERONE [Concomitant]
     Active Substance: PROGESTERONE
     Indication: Haemorrhage in pregnancy
     Dosage: 200 MILLIGRAM, QD (MATERNAL DOSE: 200 [MG/D (100-0-100))
     Route: 064
     Dates: start: 20190730, end: 20190801

REACTIONS (4)
  - Congenital absence of vertebra [Unknown]
  - Gastroschisis [Unknown]
  - Subdural hygroma [Unknown]
  - Foetal exposure during pregnancy [Recovered/Resolved]
